FAERS Safety Report 10522888 (Version 3)
Quarter: 2014Q4

REPORT INFORMATION
  Report Type: Spontaneous
  Country: JP (occurrence: JP)
  Receive Date: 20141016
  Receipt Date: 20141204
  Transmission Date: 20150528
  Serious: Yes (Hospitalization, Other)
  Sender: FDA-Public Use
  Company Number: JP-GLAXOSMITHKLINE-JP2014JPN001766

PATIENT
  Age: 69 Year
  Sex: Female
  Weight: 38 kg

DRUGS (10)
  1. SENNOSIDE [Concomitant]
     Active Substance: SENNOSIDES
     Indication: CONSTIPATION
     Dosage: 24 MG, UNK
     Dates: start: 20140912, end: 20140929
  2. VELCADE [Concomitant]
     Active Substance: BORTEZOMIB
     Dosage: 3 MG, QD
     Dates: start: 20140918, end: 20140918
  3. PRECIPITATED CALCIUM CARBONATE [Concomitant]
     Active Substance: CALCIUM CARBONATE
     Dosage: 1000 MG, TID
     Dates: start: 20140917
  4. DECADRON [Concomitant]
     Active Substance: DEXAMETHASONE
     Dosage: 0.5 MG, QD
     Dates: start: 20140918, end: 20140929
  5. LENADEX [Concomitant]
     Active Substance: DEXAMETHASONE ACETATE
     Dosage: UNK, BID
     Dates: start: 20140918, end: 20140929
  6. FUROSEMIDE. [Concomitant]
     Active Substance: FUROSEMIDE
     Dosage: 20 MG, QD
     Dates: start: 20140912, end: 20140929
  7. PRECIPITATED CALCIUM CARBONATE [Concomitant]
     Active Substance: CALCIUM CARBONATE
     Dosage: 500 MG, TID
     Dates: start: 20140912, end: 20140917
  8. VALTREX [Suspect]
     Active Substance: VALACYCLOVIR HYDROCHLORIDE
     Indication: INFECTION PROPHYLAXIS
     Dosage: 250 MG, QD
     Route: 048
     Dates: start: 20140927, end: 20140929
  9. MICARDIS [Concomitant]
     Active Substance: TELMISARTAN
     Dosage: 20 MG, QD
     Dates: start: 20140912, end: 20140929
  10. REBAMIPIDE [Concomitant]
     Active Substance: REBAMIPIDE
     Dosage: 100 MG, TID
     Dates: start: 20140912, end: 20140919

REACTIONS (7)
  - Toxic encephalopathy [Unknown]
  - Altered state of consciousness [Recovering/Resolving]
  - Disorientation [Unknown]
  - Dysstasia [Unknown]
  - Cushingoid [Unknown]
  - Hypoglycaemia [Unknown]
  - Restlessness [Unknown]

NARRATIVE: CASE EVENT DATE: 201409
